FAERS Safety Report 4747734-7 (Version None)
Quarter: 2005Q3

REPORT INFORMATION
  Report Type: 
  Country: None (occurrence: None)
  Receive Date: 20050816
  Receipt Date: 20050803
  Transmission Date: 20060218
  Serious: Yes (Hospitalization)
  Sender: FDA-Public Use
  Company Number: 198988

PATIENT
  Age: 57 Year
  Sex: Female
  Weight: 90.2658 kg

DRUGS (9)
  1. AVONEX [Suspect]
     Indication: MULTIPLE SCLEROSIS
     Dosage: SEE IMAGE
     Route: 030
     Dates: start: 19990901, end: 20040101
  2. CELEBREX [Concomitant]
  3. GLUCOPHAGE [Concomitant]
  4. AVANDAMET [Concomitant]
  5. DARVOCET [Concomitant]
  6. CARDIZEM [Concomitant]
  7. ASPIRIN [Concomitant]
  8. MONOPRIL [Concomitant]
  9. LOVASTATIN [Concomitant]

REACTIONS (7)
  - ANXIETY [None]
  - BLOOD GLUCOSE INCREASED [None]
  - DEPRESSION [None]
  - HEARING IMPAIRED [None]
  - MEMORY IMPAIRMENT [None]
  - PARAESTHESIA [None]
  - WEIGHT INCREASED [None]
